FAERS Safety Report 12814105 (Version 1)
Quarter: 2016Q4

REPORT INFORMATION
  Report Type: Spontaneous
  Country: US (occurrence: US)
  Receive Date: 20161005
  Receipt Date: 20161005
  Transmission Date: 20170207
  Serious: No
  Sender: FDA-Public Use
  Company Number: US-AMGEN-USASP2016047038

PATIENT
  Age: 64 Year
  Sex: Female

DRUGS (2)
  1. BACTIMED                           /00000503/ [Concomitant]
  2. PROLIA [Suspect]
     Active Substance: DENOSUMAB
     Indication: OSTEOPOROSIS POSTMENOPAUSAL
     Dosage: UNK
     Route: 065

REACTIONS (4)
  - Abdominal discomfort [Unknown]
  - Burning sensation [Unknown]
  - Pain in extremity [Recovering/Resolving]
  - Micturition urgency [Unknown]
